FAERS Safety Report 7180359-5 (Version None)
Quarter: 2010Q4

REPORT INFORMATION
  Report Type: 
  Country: None (occurrence: None)
  Receive Date: 20101221
  Receipt Date: 20101215
  Transmission Date: 20110411
  Serious: Yes (Hospitalization)
  Sender: FDA-Public Use
  Company Number: A0900526A

PATIENT
  Sex: Female
  Weight: 12 kg

DRUGS (1)
  1. AMOXIL [Suspect]
     Indication: PHARYNGEAL INFLAMMATION
     Dosage: 3ML TWICE PER DAY
     Route: 065
     Dates: start: 20101208, end: 20101209

REACTIONS (4)
  - ERYTHEMA [None]
  - PRURITUS [None]
  - PYREXIA [None]
  - REACTION TO COLOURING [None]
